FAERS Safety Report 6427131-9 (Version None)
Quarter: 2009Q4

REPORT INFORMATION
  Report Type: 
  Country: None (occurrence: None)
  Receive Date: 20091104
  Receipt Date: 20091027
  Transmission Date: 20100525
  Serious: Yes (Other)
  Sender: FDA-Public Use
  Company Number: CHPA2009US20996

PATIENT
  Sex: Male

DRUGS (1)
  1. BENEFIBER PLUS CALCIUM WITH WHEAT DEXTRIN(NCH) [Suspect]
     Indication: NUTRITIONAL SUPPORT
     Dosage: UNK, BID
     Route: 048
     Dates: start: 20090101

REACTIONS (1)
  - BLOOD POTASSIUM INCREASED [None]
